FAERS Safety Report 10937695 (Version 2)
Quarter: 2015Q2

REPORT INFORMATION
  Report Type: Spontaneous
  Country: US (occurrence: US)
  Receive Date: 20150321
  Receipt Date: 20150525
  Transmission Date: 20150821
  Serious: No
  Sender: FDA-Public Use
  Company Number: US-JNJFOC-20130109795

PATIENT
  Age: 48 Year
  Sex: Male
  Weight: 127.01 kg

DRUGS (1)
  1. STELARA [Suspect]
     Active Substance: USTEKINUMAB
     Indication: PSORIASIS
     Route: 058
     Dates: start: 20130111

REACTIONS (7)
  - Bacterial test [Unknown]
  - Pain [Unknown]
  - Chills [Unknown]
  - Prostatic disorder [Not Recovered/Not Resolved]
  - Headache [Unknown]
  - Blood urine present [Unknown]
  - Constipation [Unknown]

NARRATIVE: CASE EVENT DATE: 20130112
